FAERS Safety Report 5422640-3 (Version None)
Quarter: 2007Q3

REPORT INFORMATION
  Report Type: 
  Country: None (occurrence: None)
  Receive Date: 20070822
  Receipt Date: 20070821
  Transmission Date: 20080115
  Serious: Yes (Death, Other)
  Sender: FDA-Public Use
  Company Number: US-PURDUE-USA_2007_0028023

PATIENT
  Age: 56 Year
  Sex: Male
  Weight: 84 kg

DRUGS (9)
  1. OXYCONTIN [Suspect]
     Indication: PAIN
     Dosage: UNK, SEE TEXT
     Dates: start: 20020717
  2. DITROPAN [Concomitant]
     Dosage: 5 MG, DAILY
  3. TERAZOSIN HCL [Concomitant]
     Dosage: 1 MG, DAILY
  4. DIOVAN [Concomitant]
     Dosage: 80 MG, DAILY
  5. DYAZIDE [Concomitant]
     Dosage: 37.5 MG, DAILY
  6. ELAVIL [Concomitant]
     Dosage: 25 MG, DAILY
  7. PREVACID [Concomitant]
     Dosage: 30 MG, DAILY
  8. GLUCOPHAGE - SLOW RELEASE [Concomitant]
     Dosage: 500 MG, QID
  9. PIOGLITAZONE [Concomitant]
     Dosage: 30 MG, DAILY

REACTIONS (11)
  - ACCIDENT AT HOME [None]
  - ACUTE MYOCARDIAL INFARCTION [None]
  - BRAIN DEATH [None]
  - DEPRESSION [None]
  - DRUG DEPENDENCE [None]
  - HYPERSOMNIA [None]
  - IRRITABILITY [None]
  - LETHARGY [None]
  - SEXUAL DYSFUNCTION [None]
  - SKIN LACERATION [None]
  - VENTRICULAR FIBRILLATION [None]
